FAERS Safety Report 23908035 (Version 1)
Quarter: 2024Q2

REPORT INFORMATION
  Report Type: Report from Study
  Country: CN (occurrence: US)
  Receive Date: 20240528
  Receipt Date: 20240528
  Transmission Date: 20240716
  Serious: Yes (Death)
  Sender: FDA-Public Use
  Company Number: US-BAYER-2024A063708

PATIENT

DRUGS (9)
  1. STIVARGA [Suspect]
     Active Substance: REGORAFENIB\REGORAFENIB MONOHYDRATE
     Indication: Colon cancer metastatic
     Dosage: UNK
  2. LEVOTHYROXINE SODIUM [Concomitant]
     Active Substance: LEVOTHYROXINE SODIUM
     Dosage: UNK
  3. PLAVIX [Concomitant]
     Active Substance: CLOPIDOGREL BISULFATE
     Dosage: UNK
  4. ELIQUIS [Concomitant]
     Active Substance: APIXABAN
     Dosage: UNK
  5. ASPIRIN [Concomitant]
     Active Substance: ASPIRIN
     Dosage: UNK
  6. IRON [Concomitant]
     Active Substance: IRON
     Dosage: UNK
  7. VERAPAMIL HCL [Concomitant]
     Active Substance: VERAPAMIL HYDROCHLORIDE
     Dosage: UNK
  8. LISINOPRIL [Concomitant]
     Active Substance: LISINOPRIL
     Dosage: UNK
  9. METFORMIN [Concomitant]
     Active Substance: METFORMIN HYDROCHLORIDE
     Dosage: UNK

REACTIONS (19)
  - Hepatotoxicity [Fatal]
  - Chromaturia [Fatal]
  - Haemorrhage [Fatal]
  - Dyspnoea [Fatal]
  - Dizziness [Fatal]
  - Hypertension [Fatal]
  - Nausea [Fatal]
  - Myocardial ischaemia [Fatal]
  - Dysphonia [Fatal]
  - Asthenia [Fatal]
  - Vomiting [Fatal]
  - Urinary tract infection [Fatal]
  - Decreased appetite [Fatal]
  - Fatigue [Fatal]
  - Chest pain [Fatal]
  - Myocardial infarction [Fatal]
  - Sleep disorder [Fatal]
  - Blister [Fatal]
  - Jaundice [Fatal]
